FAERS Safety Report 4402972-8 (Version None)
Quarter: 2004Q3

REPORT INFORMATION
  Report Type: 
  Country: None (occurrence: None)
  Receive Date: 20040721
  Receipt Date: 20030806
  Transmission Date: 20050211
  Serious: No
  Sender: FDA-Public Use
  Company Number: US-GLAXOSMITHKLINE-A0420774A

PATIENT
  Age: 25 Year
  Sex: Female

DRUGS (3)
  1. IMITREX [Suspect]
     Indication: MIGRAINE
     Dosage: 25MG TWICE PER DAY
     Route: 048
     Dates: start: 20030805
  2. IMITREX [Suspect]
     Route: 045
  3. BIRTH CONTROL [Concomitant]
     Route: 048

REACTIONS (1)
  - DRUG INEFFECTIVE [None]
